FAERS Safety Report 9188793 (Version 1)
Quarter: 2013Q1

REPORT INFORMATION
  Report Type: Spontaneous
  Country: CA (occurrence: CA)
  Receive Date: 20130326
  Receipt Date: 20130326
  Transmission Date: 20140127
  Serious: Yes (Other)
  Sender: FDA-Public Use
  Company Number: CHPA2013CA005080

PATIENT
  Sex: Male

DRUGS (3)
  1. BUCKLEY^S COMPLETE [Suspect]
     Indication: PNEUMONIA
     Dosage: UNK, TID
     Route: 048
  2. BUCKLEY^S UNKNOWN [Suspect]
     Indication: INFLUENZA
     Dosage: UNK, UNK
     Route: 048
  3. BUCKLEY^S UNKNOWN [Suspect]
     Indication: PULMONARY CONGESTION

REACTIONS (5)
  - Pneumonia [Recovering/Resolving]
  - Disease recurrence [Recovering/Resolving]
  - Therapeutic response unexpected [Unknown]
  - Cough [Recovering/Resolving]
  - Nasopharyngitis [Recovering/Resolving]
